FAERS Safety Report 25985787 (Version 1)
Quarter: 2025Q4

REPORT INFORMATION
  Report Type: Spontaneous
  Country: US (occurrence: US)
  Receive Date: 20251031
  Receipt Date: 20251031
  Transmission Date: 20260118
  Serious: No
  Sender: PFIZER
  Company Number: US-PFIZER INC-202500213249

PATIENT
  Age: 70 Year
  Sex: Female
  Weight: 52.16 kg

DRUGS (2)
  1. MINOXIDIL [Suspect]
     Active Substance: MINOXIDIL
     Indication: Alopecia
     Dosage: 0.25 MG, DAILY (HALF TABLET MORNING, HALF TABLET IN NIGHT, DAILY; TOTAL OF .25MG PER DAY)
     Route: 048
     Dates: end: 2024
  2. MINOXIDIL [Suspect]
     Active Substance: MINOXIDIL
     Dosage: 0.25 MG, DAILY (HALF TABLET MORNING, HALF TABLET IN NIGHT, DAILY; TOTAL OF .25MG PER DAY)
     Route: 048
     Dates: start: 2025, end: 202508

REACTIONS (5)
  - Increased tendency to bruise [Unknown]
  - Skin laceration [Unknown]
  - Contusion [Unknown]
  - Off label use [Unknown]
  - Off label use [Unknown]

NARRATIVE: CASE EVENT DATE: 20231001
